APPROVED DRUG PRODUCT: MYSOLINE
Active Ingredient: PRIMIDONE
Strength: 250MG
Dosage Form/Route: TABLET;ORAL
Application: N009170 | Product #002 | TE Code: AB
Applicant: VALEANT PHARMACEUTICALS INTERNATIONAL
Approved: Approved Prior to Jan 1, 1982 | RLD: Yes | RS: No | Type: RX